FAERS Safety Report 24133938 (Version 1)
Quarter: 2024Q3

REPORT INFORMATION
  Report Type: Report from Study
  Country: US (occurrence: US)
  Receive Date: 20240724
  Receipt Date: 20240724
  Transmission Date: 20241016
  Serious: Yes (Hospitalization)
  Sender: NOVARTIS
  Company Number: US-002147023-NVSC2024US071442

PATIENT
  Sex: Female

DRUGS (1)
  1. KISQALI [Suspect]
     Active Substance: RIBOCICLIB
     Indication: Breast cancer female
     Dosage: UNK
     Route: 065

REACTIONS (6)
  - Gastrointestinal infection [Unknown]
  - Nausea [Unknown]
  - Diarrhoea [Unknown]
  - Abdominal pain upper [Unknown]
  - Alopecia [Unknown]
  - Vomiting [Unknown]
